FAERS Safety Report 20629000 (Version 2)
Quarter: 2023Q2

REPORT INFORMATION
  Report Type: Spontaneous
  Country: JP (occurrence: JP)
  Receive Date: 20220323
  Receipt Date: 20230626
  Transmission Date: 20230722
  Serious: Yes (Death, Other)
  Sender: FDA-Public Use
  Company Number: JP-ABBVIE-22K-087-4328398-00

PATIENT
  Age: 74 Year
  Sex: Female

DRUGS (3)
  1. VENCLEXTA [Suspect]
     Active Substance: VENETOCLAX
     Indication: Acute myeloid leukaemia
     Dosage: 600 MILLIGRAM, STRENGTH 100 MG
     Route: 048
  2. CYTARABINE [Suspect]
     Active Substance: CYTARABINE
     Indication: Acute myeloid leukaemia
     Dosage: 20 MG/M2
     Route: 058
  3. CYTARABINE [Suspect]
     Active Substance: CYTARABINE
     Indication: Acute myeloid leukaemia
     Route: 058

REACTIONS (4)
  - Acute myeloid leukaemia [Fatal]
  - Neoplasm [Unknown]
  - Blood bilirubin increased [Unknown]
  - Pyrexia [Recovered/Resolved]
